FAERS Safety Report 22378840 (Version 1)
Quarter: 2023Q2

REPORT INFORMATION
  Report Type: Spontaneous
  Country: US (occurrence: US)
  Receive Date: 20230529
  Receipt Date: 20230529
  Transmission Date: 20230721
  Serious: Yes (Other)
  Sender: FDA-Public Use
  Company Number: US-TAKEDA-2023TUS050652

PATIENT
  Sex: Female
  Weight: 65 kg

DRUGS (6)
  1. ENTYVIO [Suspect]
     Active Substance: VEDOLIZUMAB
     Indication: Crohn^s disease
     Dosage: UNK
     Route: 042
  2. ENTYVIO [Suspect]
     Active Substance: VEDOLIZUMAB
     Dosage: UNK UNK, Q4WEEKS
     Route: 042
  3. PENTASA [Concomitant]
     Active Substance: MESALAMINE
     Dosage: UNK
  4. LIALDA [Concomitant]
     Active Substance: MESALAMINE
     Dosage: UNK
     Route: 065
  5. MESALAMINE [Concomitant]
     Active Substance: MESALAMINE
     Dosage: UNK
  6. POTASSIUM [Concomitant]
     Active Substance: POTASSIUM
     Dosage: UNK

REACTIONS (11)
  - Crohn^s disease [Unknown]
  - Splenic thrombosis [Unknown]
  - Feeling abnormal [Unknown]
  - Asthenia [Unknown]
  - Weight decreased [Unknown]
  - Respiratory tract congestion [Unknown]
  - Off label use [Unknown]
  - Decreased appetite [Unknown]
  - Chills [Unknown]
  - Night sweats [Unknown]
  - Cough [Unknown]
